FAERS Safety Report 7415697-1 (Version None)
Quarter: 2011Q2

REPORT INFORMATION
  Report Type: 
  Country: None (occurrence: None)
  Receive Date: 20110414
  Receipt Date: 20110404
  Transmission Date: 20111010
  Serious: Yes (Hospitalization, Disabling, Other)
  Sender: FDA-Public Use
  Company Number: US-MERCK-1006USA00660

PATIENT
  Age: 68 Year
  Sex: Female
  Weight: 54 kg

DRUGS (6)
  1. FOSAMAX [Suspect]
     Route: 048
     Dates: start: 19990716, end: 20010313
  2. FOSAMAX [Suspect]
     Route: 048
     Dates: start: 19990716, end: 20010313
  3. FOSAMAX PLUS D [Suspect]
     Indication: OSTEOPOROSIS
     Route: 048
     Dates: start: 20080126, end: 20080711
  4. FOSAMAX PLUS D [Suspect]
     Indication: OSTEOPENIA
     Route: 048
     Dates: start: 20080126, end: 20080711
  5. FOSAMAX [Suspect]
     Indication: OSTEOPENIA
     Route: 048
     Dates: start: 20010614, end: 20080611
  6. FOSAMAX [Suspect]
     Indication: OSTEOPOROSIS
     Route: 048
     Dates: start: 20010614, end: 20080611

REACTIONS (25)
  - ANAEMIA [None]
  - WEIGHT DECREASED [None]
  - BILIARY COLIC [None]
  - ANXIETY [None]
  - FEMUR FRACTURE [None]
  - FALL [None]
  - LOOSE TOOTH [None]
  - HYPERLIPIDAEMIA [None]
  - BONE DENSITY DECREASED [None]
  - CONSTIPATION [None]
  - WRIST FRACTURE [None]
  - TOOTH DISORDER [None]
  - DRUG INEFFECTIVE [None]
  - NAUSEA [None]
  - PEPTIC ULCER [None]
  - CLOSTRIDIUM DIFFICILE COLITIS [None]
  - INJURY [None]
  - STRESS FRACTURE [None]
  - HYPERTENSION [None]
  - HYPERGLYCAEMIA [None]
  - RASH [None]
  - OSTEOPENIA [None]
  - BLOOD CHOLESTEROL INCREASED [None]
  - HYPOKALAEMIA [None]
  - PLASMA PROTEIN METABOLISM DISORDER [None]
